FAERS Safety Report 16771360 (Version 1)
Quarter: 2019Q3

REPORT INFORMATION
  Report Type: Spontaneous
  Country: US (occurrence: US)
  Receive Date: 20190715
  Receipt Date: 20190715
  Transmission Date: 20191005
  Serious: No
  Sender: FDA-Public Use
  Company Number: None

PATIENT
  Age: 16 Year
  Sex: Female

DRUGS (1)
  1. STELARA [Suspect]
     Active Substance: USTEKINUMAB
     Indication: CROHN^S DISEASE
     Dosage: ?          OTHER FREQUENCY:EVERY4WEEKS ;?
     Route: 058
     Dates: start: 20181013

REACTIONS (3)
  - Colitis [None]
  - Diarrhoea [None]
  - Bone density decreased [None]

NARRATIVE: CASE EVENT DATE: 20190703
